FAERS Safety Report 8432162-3 (Version None)
Quarter: 2012Q2

REPORT INFORMATION
  Report Type: 
  Country: None (occurrence: None)
  Receive Date: 20120613
  Receipt Date: 20120606
  Transmission Date: 20120825
  Serious: Yes (Hospitalization)
  Sender: FDA-Public Use
  Company Number: IT-SANOFI-AVENTIS-2012SA040115

PATIENT
  Age: 80 Year
  Sex: Female

DRUGS (2)
  1. ETHANOL [Suspect]
     Indication: ALCOHOL USE
     Dosage: MODERATE INTAKE.
     Route: 048
  2. STILNOX [Suspect]
     Indication: DEPRESSION
     Dosage: 30 MG IN TOTAL.
     Route: 048
     Dates: start: 20120429, end: 20120430

REACTIONS (4)
  - SOMNOLENCE [None]
  - SLOW SPEECH [None]
  - CONFUSIONAL STATE [None]
  - APRAXIA [None]
